FAERS Safety Report 4417363-3 (Version None)
Quarter: 2004Q3

REPORT INFORMATION
  Report Type: 
  Country: None (occurrence: None)
  Receive Date: 20040702
  Receipt Date: 20030815
  Transmission Date: 20050211
  Serious: Yes (Other)
  Sender: FDA-Public Use
  Company Number: 2003034845

PATIENT
  Sex: Male
  Weight: 145.151 kg

DRUGS (5)
  1. ACCUPRIL [Suspect]
     Indication: STENT PLACEMENT
     Dosage: 40 MG (DAILY), ORAL
     Route: 048
  2. ALPRAZOLAM [Suspect]
     Indication: NERVOUSNESS
     Dosage: UNKNOWN
     Route: 065
     Dates: start: 20030101
  3. ATORVASTATIN (ATORVASTATIN) [Concomitant]
  4. ASPIRIN [Concomitant]
  5. ASCORBIC ACID [Concomitant]

REACTIONS (5)
  - ABDOMINAL DISCOMFORT [None]
  - COLD SWEAT [None]
  - DIZZINESS [None]
  - HYPERTENSION [None]
  - PANIC ATTACK [None]
